FAERS Safety Report 6988885-6 (Version None)
Quarter: 2010Q3

REPORT INFORMATION
  Report Type: 
  Country: None (occurrence: None)
  Receive Date: 20100916
  Receipt Date: 20100907
  Transmission Date: 20110219
  Serious: Yes (Hospitalization)
  Sender: FDA-Public Use
  Company Number: US-AMGEN-KDL437041

PATIENT
  Sex: Male
  Weight: 2.13 kg

DRUGS (4)
  1. ENBREL [Suspect]
     Route: 064
     Dates: start: 20060301
  2. PREDNISONE [Concomitant]
     Route: 064
  3. PRENATAL VITAMINS [Concomitant]
     Route: 064
  4. LOVAZA [Concomitant]
     Route: 064

REACTIONS (2)
  - PATENT DUCTUS ARTERIOSUS [None]
  - PREMATURE BABY [None]
